FAERS Safety Report 5109171-5 (Version None)
Quarter: 2006Q3

REPORT INFORMATION
  Report Type: 
  Country: None (occurrence: None)
  Receive Date: 20060920
  Receipt Date: 20060912
  Transmission Date: 20061208
  Serious: Yes (Hospitalization)
  Sender: FDA-Public Use
  Company Number: AU-ROCHE-462754

PATIENT
  Age: 41 Year
  Sex: Male

DRUGS (9)
  1. PEG-INTERFERON A-2A (RO 25-8310) [Suspect]
     Dosage: FREQUENCY= WEEKLY
     Route: 058
  2. RIBAVIRIN [Suspect]
     Route: 048
  3. METOCLOPRAMIDE [Concomitant]
  4. PANADOL [Concomitant]
  5. IMODIUM [Concomitant]
  6. PROCHLORPERAZINE [Concomitant]
  7. EFAVIRENZ [Concomitant]
  8. TENOFOVIR [Concomitant]
  9. EMTRICITABINE [Concomitant]

REACTIONS (3)
  - HEADACHE [None]
  - PHOTOSENSITIVITY REACTION [None]
  - VERTIGO [None]
